FAERS Safety Report 6434729-0 (Version None)
Quarter: 2009Q4

REPORT INFORMATION
  Report Type: 
  Country: None (occurrence: None)
  Receive Date: 20091110
  Receipt Date: 20091105
  Transmission Date: 20100525
  Serious: Yes (Other)
  Sender: FDA-Public Use
  Company Number: US-MERCK-0911USA01454

PATIENT

DRUGS (1)
  1. IVEMEND [Suspect]
     Indication: BREAST CANCER
     Route: 041

REACTIONS (2)
  - INFUSION SITE PAIN [None]
  - PAIN [None]
